FAERS Safety Report 8008679-2 (Version None)
Quarter: 2011Q4

REPORT INFORMATION
  Report Type: 
  Country: None (occurrence: None)
  Receive Date: 20111221
  Receipt Date: 20111212
  Transmission Date: 20120403
  Serious: Yes (Hospitalization, Other)
  Sender: FDA-Public Use
  Company Number: 2011MA017513

PATIENT
  Age: 64 Year
  Sex: Female

DRUGS (5)
  1. VALPROATE SODIUM [Suspect]
     Indication: EPILEPSY
     Dosage: 400 MG, QD, PO
     Route: 048
  2. PHENYTOIN [Suspect]
     Indication: EPILEPSY
     Dosage: 250 MG, QD, PO
     Route: 048
  3. CEFTAZIDIME HYDRATE (NO PREF. NAME) [Suspect]
     Indication: CHOLECYSTITIS
     Dosage: 1200 MG
  4. CLINDAMYCIN [Suspect]
     Indication: CHOLECYSTITIS
     Dosage: 2000 MG
  5. PAZUFLOXACIN MESYLATE (NO PREF. NAME) [Suspect]
     Indication: CHOLECYSTITIS
     Dosage: 1000 MG

REACTIONS (7)
  - DRUG INTERACTION [None]
  - DRUG LEVEL INCREASED [None]
  - BLOOD ALKALINE PHOSPHATASE INCREASED [None]
  - GRAND MAL CONVULSION [None]
  - TOXICITY TO VARIOUS AGENTS [None]
  - CHOLECYSTITIS [None]
  - HYPOALBUMINAEMIA [None]
